FAERS Safety Report 4736209-7 (Version None)
Quarter: 2005Q3

REPORT INFORMATION
  Report Type: 
  Country: None (occurrence: None)
  Receive Date: 20050806
  Receipt Date: 20050727
  Transmission Date: 20060218
  Serious: Yes (Other)
  Sender: FDA-Public Use
  Company Number: PHEH2005US08404

PATIENT

DRUGS (1)
  1. ZOMETA [Suspect]

REACTIONS (1)
  - ASEPTIC NECROSIS BONE [None]
